FAERS Safety Report 6704010 (Version 2)
Quarter: 2019Q1

REPORT INFORMATION
  Report Type: Spontaneous
  Country: GB (occurrence: GB)
  Receive Date: 20080718
  Receipt Date: 20190311
  Transmission Date: 20190418
  Serious: Yes (Disabling, Other)
  Sender: FDA-Public Use
  Company Number: GB-PFIZER INC-2008056938

PATIENT
  Age: 58 Year
  Sex: Female
  Weight: 70 kg

DRUGS (2)
  1. CHAMPIX [Suspect]
     Active Substance: VARENICLINE TARTRATE
     Dosage: 1 MG, 2X/DAY
  2. CHAMPIX [Suspect]
     Active Substance: VARENICLINE TARTRATE
     Indication: SMOKING CESSATION THERAPY
     Dosage: 500 UG, 2X/DAY
     Route: 048

REACTIONS (5)
  - Nasal discomfort [Recovering/Resolving]
  - Blister [Recovering/Resolving]
  - Rash [Recovering/Resolving]
  - Palpitations [Recovering/Resolving]
  - Nausea [Recovering/Resolving]
